FAERS Safety Report 20941076 (Version 3)
Quarter: 2022Q4

REPORT INFORMATION
  Report Type: Spontaneous
  Country: US (occurrence: US)
  Receive Date: 20220609
  Receipt Date: 20221223
  Transmission Date: 20230113
  Serious: Yes (Hospitalization, Disabling, Other)
  Sender: FDA-Public Use
  Company Number: US-009507513-2206USA001032

PATIENT
  Sex: Female

DRUGS (4)
  1. KEYTRUDA [Suspect]
     Active Substance: PEMBROLIZUMAB
     Indication: Triple negative breast cancer
     Dosage: COMPLETED 2 CYCLES
     Dates: start: 20210602, end: 20210623
  2. NORCO [Suspect]
     Active Substance: ACETAMINOPHEN\HYDROCODONE BITARTRATE
     Indication: Pain
  3. ENTRESTO [Suspect]
     Active Substance: SACUBITRIL\VALSARTAN
     Dosage: UNK
  4. NAPROSYN [Suspect]
     Active Substance: NAPROXEN

REACTIONS (38)
  - Drug ineffective [Unknown]
  - Cardiac failure congestive [Recovering/Resolving]
  - Osteonecrosis [Not Recovered/Not Resolved]
  - Cardiac ventricular thrombosis [Unknown]
  - Congestive cardiomyopathy [Unknown]
  - Pericardial effusion [Unknown]
  - Pneumonia [Unknown]
  - Immune-mediated myocarditis [Recovering/Resolving]
  - Adrenal insufficiency [Unknown]
  - Anxiety [Recovered/Resolved]
  - Fear [Unknown]
  - Milia [Recovering/Resolving]
  - Osteopenia [Unknown]
  - Pleural effusion [Unknown]
  - Myocardial fibrosis [Unknown]
  - Stress fracture [Recovered/Resolved]
  - Fractured sacrum [Recovered/Resolved]
  - Feeling abnormal [Unknown]
  - Breast disorder female [Unknown]
  - Spinal osteoarthritis [Unknown]
  - Intervertebral disc space narrowing [Unknown]
  - Hot flush [Not Recovered/Not Resolved]
  - Productive cough [Unknown]
  - Cushingoid [Recovering/Resolving]
  - Activated partial thromboplastin time prolonged [Unknown]
  - Stress cardiomyopathy [Unknown]
  - Red cell distribution width abnormal [Unknown]
  - Mean platelet volume abnormal [Unknown]
  - Monocyte count abnormal [Unknown]
  - Lymphocyte count abnormal [Unknown]
  - Peripheral swelling [Unknown]
  - Dyspepsia [Unknown]
  - Vision blurred [Unknown]
  - Dizziness [Unknown]
  - Abdominal pain upper [Unknown]
  - Drug hypersensitivity [Unknown]
  - Drug hypersensitivity [Unknown]
  - Thyroiditis [Unknown]

NARRATIVE: CASE EVENT DATE: 20210101
